FAERS Safety Report 23375730 (Version 1)
Quarter: 2024Q1

REPORT INFORMATION
  Report Type: Spontaneous
  Country: US (occurrence: US)
  Receive Date: 20240107
  Receipt Date: 20240107
  Transmission Date: 20240410
  Serious: Yes (Other)
  Sender: FDA-Public Use
  Company Number: US-AMGEN-USASP2024000970

PATIENT

DRUGS (2)
  1. XGEVA [Suspect]
     Active Substance: DENOSUMAB
     Indication: Prostate cancer metastatic
     Dosage: UNK
     Route: 065
  2. XGEVA [Suspect]
     Active Substance: DENOSUMAB
     Indication: Prostate cancer

REACTIONS (9)
  - Compression fracture [Unknown]
  - Hip fracture [Unknown]
  - Femur fracture [Unknown]
  - Lower limb fracture [Unknown]
  - Fracture [Unknown]
  - Rib fracture [Unknown]
  - Foot fracture [Unknown]
  - Upper limb fracture [Unknown]
  - Osteoporosis [Unknown]
